FAERS Safety Report 6011216-5 (Version None)
Quarter: 2008Q4

REPORT INFORMATION
  Report Type: 
  Country: None (occurrence: None)
  Receive Date: 20081218
  Receipt Date: 20081209
  Transmission Date: 20090506
  Serious: Yes (Hospitalization, Other)
  Sender: FDA-Public Use
  Company Number: US-MERCK-0705USA02159

PATIENT
  Age: 59 Year
  Sex: Female

DRUGS (21)
  1. FOSAMAX [Suspect]
     Indication: OSTEOPOROSIS
     Route: 048
     Dates: start: 20030803, end: 20060901
  2. PLAVIX [Concomitant]
     Route: 065
  3. CLARINEX [Concomitant]
     Route: 065
  4. CYMBALTA [Concomitant]
     Route: 065
  5. SINGULAIR [Concomitant]
     Route: 065
  6. ALAVERT [Concomitant]
     Route: 065
  7. ADEHL [Concomitant]
     Route: 065
  8. ZEOTIN [Concomitant]
     Route: 065
  9. DOXITIN [Concomitant]
     Route: 065
  10. FOLIC ACID [Concomitant]
     Route: 065
  11. PRILOSEC [Concomitant]
     Route: 065
  12. DIAZEPAN [Concomitant]
     Route: 065
  13. SOTYL [Concomitant]
     Route: 065
  14. CYANOCOBALAMIN [Concomitant]
     Route: 065
  15. MIGRAZONE [Concomitant]
     Route: 065
  16. ULTRAM [Concomitant]
     Route: 065
     Dates: start: 19980101
  17. NITROGLYCERIN [Concomitant]
     Route: 065
  18. TIMOLOL [Concomitant]
     Route: 065
  19. FOSAMAX PLUS D [Suspect]
     Indication: OSTEOPOROSIS
     Route: 048
     Dates: start: 20030801, end: 20060901
  20. TRAMADOL HYDROCHLORIDE [Concomitant]
     Route: 065
     Dates: start: 19980101
  21. INSULIN [Concomitant]
     Indication: DIABETES MELLITUS
     Route: 065
     Dates: start: 19880101

REACTIONS (33)
  - ABSCESS [None]
  - ADVERSE DRUG REACTION [None]
  - ANGINA PECTORIS [None]
  - ANGIOPATHY [None]
  - ANXIETY [None]
  - ARRHYTHMIA [None]
  - ARTHROPATHY [None]
  - ATRIAL FIBRILLATION [None]
  - BLOOD PRESSURE DECREASED [None]
  - CARDIAC DISORDER [None]
  - CARPAL TUNNEL SYNDROME [None]
  - CATARACT [None]
  - CELLULITIS [None]
  - CHEILITIS [None]
  - DENTAL CARIES [None]
  - DEPRESSION [None]
  - DEVICE FAILURE [None]
  - DRY MOUTH [None]
  - FIBROMYALGIA [None]
  - HYPERPARATHYROIDISM [None]
  - INTESTINAL FUNCTIONAL DISORDER [None]
  - INTESTINAL OBSTRUCTION [None]
  - JAW FRACTURE [None]
  - MITRAL VALVE PROLAPSE [None]
  - MOUTH ULCERATION [None]
  - OBESITY [None]
  - ORAL CANDIDIASIS [None]
  - OSTEOARTHRITIS [None]
  - OSTEONECROSIS [None]
  - RENAL CYST [None]
  - RENAL FAILURE CHRONIC [None]
  - TOOTH FRACTURE [None]
  - TRANSIENT ISCHAEMIC ATTACK [None]
